FAERS Safety Report 23961232 (Version 1)
Quarter: 2024Q2

REPORT INFORMATION
  Report Type: Spontaneous
  Country: CA (occurrence: CA)
  Receive Date: 20240611
  Receipt Date: 20240611
  Transmission Date: 20240715
  Serious: Yes (Other)
  Sender: FDA-Public Use
  Company Number: CA-PFIZER INC-202400189346

PATIENT

DRUGS (3)
  1. PAXLOVID [Suspect]
     Active Substance: NIRMATRELVIR\RITONAVIR
     Indication: COVID-19 treatment
     Dosage: 5 DF, SINGLE
  2. JARDIANCE [Concomitant]
     Active Substance: EMPAGLIFLOZIN
  3. VILDAGLIPTIN / METFORMIN TEVA [Concomitant]

REACTIONS (4)
  - Dizziness [Unknown]
  - Malaise [Unknown]
  - Prolonged expiration [Unknown]
  - Off label use [Unknown]
